FAERS Safety Report 21840602 (Version 3)
Quarter: 2023Q2

REPORT INFORMATION
  Report Type: Report from Study
  Country: US (occurrence: US)
  Receive Date: 20230110
  Receipt Date: 20230430
  Transmission Date: 20230722
  Serious: No
  Sender: FDA-Public Use
  Company Number: US-002147023-NVSC2023US004493

PATIENT
  Sex: Female

DRUGS (1)
  1. ILARIS [Suspect]
     Active Substance: CANAKINUMAB
     Indication: Product used for unknown indication
     Dosage: UNK
     Route: 065

REACTIONS (7)
  - Withdrawal syndrome [Unknown]
  - Brain fog [Unknown]
  - Dyspnoea [Unknown]
  - Fatigue [Unknown]
  - Pyrexia [Unknown]
  - Myalgia [Unknown]
  - Chest pain [Unknown]
